FAERS Safety Report 17398316 (Version 1)
Quarter: 2020Q1

REPORT INFORMATION
  Report Type: Spontaneous
  Country: US (occurrence: US)
  Receive Date: 20200210
  Receipt Date: 20200210
  Transmission Date: 20200409
  Serious: No
  Sender: FDA-Public Use
  Company Number: US-VAYAPHARMA-2018-US-004065

PATIENT
  Age: 7 Year
  Sex: Male
  Weight: 24.95 kg

DRUGS (3)
  1. UNK ADHD SUPPLEMENT [Suspect]
     Active Substance: UNSPECIFIED INGREDIENT
     Route: 048
  2. VAYARIN [Suspect]
     Active Substance: DOCONEXENT\ICOSAPENT\PHOSPHATIDYL SERINE
     Indication: ATTENTION DEFICIT/HYPERACTIVITY DISORDER
     Dosage: 2 CAPS DAILY
     Route: 048
     Dates: start: 201712, end: 201802
  3. UNK ADHD SUPPLEMENT [Suspect]
     Active Substance: UNSPECIFIED INGREDIENT
     Route: 048

REACTIONS (6)
  - Therapeutic product ineffective [Recovered/Resolved]
  - Decreased appetite [Recovered/Resolved]
  - Influenza like illness [Recovered/Resolved]
  - Vomiting [Recovered/Resolved]
  - Cough [Recovered/Resolved]
  - Fatigue [Recovered/Resolved]

NARRATIVE: CASE EVENT DATE: 201802
